FAERS Safety Report 8878662 (Version 1)
Quarter: 2012Q4

REPORT INFORMATION
  Report Type: 
  Country: PL (occurrence: PL)
  Receive Date: 20121026
  Receipt Date: 20121026
  Transmission Date: 20130627
  Serious: Yes (Other)
  Sender: FDA-Public Use
  Company Number: PHHY2012PL094851

PATIENT
  Age: 53 Year
  Sex: Male

DRUGS (2)
  1. NILOTINIB [Suspect]
     Indication: CHRONIC MYELOID LEUKAEMIA
     Dosage: 800 mg, QD
     Route: 048
     Dates: start: 20120511
  2. NILOTINIB [Suspect]
     Dosage: 400 mg, QD
     Route: 048

REACTIONS (3)
  - Respiratory failure [Unknown]
  - Pulmonary hypertension [Unknown]
  - Cardiac failure [Unknown]
